FAERS Safety Report 20340475 (Version 1)
Quarter: 2022Q1

REPORT INFORMATION
  Report Type: Spontaneous
  Country: GB (occurrence: GB)
  Receive Date: 20220117
  Receipt Date: 20220117
  Transmission Date: 20220423
  Serious: Yes (Other)
  Sender: FDA-Public Use
  Company Number: None

PATIENT
  Age: 65 Year
  Sex: Male
  Weight: 77 kg

DRUGS (15)
  1. ROSUVASTATIN [Suspect]
     Active Substance: ROSUVASTATIN
     Indication: Ill-defined disorder
     Dosage: UNK (TAKE ONE DAILY)
     Route: 065
     Dates: start: 20211224, end: 20220112
  2. ROSUVASTATIN [Suspect]
     Active Substance: ROSUVASTATIN
     Dosage: UNK
     Route: 065
     Dates: start: 20220112
  3. AMLODIPINE [Concomitant]
     Active Substance: AMLODIPINE BESYLATE
     Indication: Ill-defined disorder
     Dosage: UNK (TAKE ONE DAILY)
     Route: 065
     Dates: start: 20210728
  4. ISOPROPYL MYRISTATE\PARAFFIN [Concomitant]
     Active Substance: ISOPROPYL MYRISTATE\PARAFFIN
     Indication: Ill-defined disorder
     Dosage: UNK (USE AS NEEDED)
     Route: 065
     Dates: start: 20210728
  5. DOXAZOSIN [Concomitant]
     Active Substance: DOXAZOSIN MESYLATE
     Indication: Ill-defined disorder
     Dosage: UNK (TAKE ONE TABLET DAILY)
     Route: 065
     Dates: start: 20210728
  6. FINASTERIDE [Concomitant]
     Active Substance: FINASTERIDE
     Indication: Ill-defined disorder
     Dosage: UNK (TAKE ONE DAILY)
     Route: 065
     Dates: start: 20210728
  7. BIMATOPROST\TIMOLOL [Concomitant]
     Active Substance: BIMATOPROST\TIMOLOL
     Indication: Ill-defined disorder
     Dosage: UNK (ONE DROP ONCE DAILY TO LEFT EYE)
     Route: 065
     Dates: start: 20210728
  8. HYALURONATE SODIUM [Concomitant]
     Active Substance: HYALURONATE SODIUM
     Indication: Ill-defined disorder
     Dosage: UNK (ONE DROP QDS TO BOTH EYES)
     Route: 065
     Dates: start: 20210728
  9. PREDNISOLONE [Concomitant]
     Active Substance: PREDNISOLONE
     Indication: Ill-defined disorder
     Dosage: UNK (SIX TABLETS TO BE TAKEN DAILY)
     Route: 065
     Dates: start: 20211205, end: 20211210
  10. RAMIPRIL [Concomitant]
     Active Substance: RAMIPRIL
     Indication: Ill-defined disorder
     Dosage: UNK (TAKE ONE DAILY)
     Route: 065
     Dates: start: 20210728
  11. SILDENAFIL [Concomitant]
     Active Substance: SILDENAFIL
     Indication: Ill-defined disorder
     Dosage: UNK (USE AS DIRECTEDA)
     Route: 065
     Dates: start: 20220112
  12. SIMBRINZA [Concomitant]
     Active Substance: BRIMONIDINE TARTRATE\BRINZOLAMIDE
     Indication: Ill-defined disorder
     Dosage: UNK (ONE DROP TWICE DAILY LEFT EYE)
     Route: 065
     Dates: start: 20210728
  13. SIMVASTATIN [Concomitant]
     Active Substance: SIMVASTATIN
     Indication: Ill-defined disorder
     Dosage: UNK (TAKE ONE AT NIGHT)
     Route: 065
     Dates: start: 20220112
  14. TAMSULOSIN HYDROCHLORIDE [Concomitant]
     Active Substance: TAMSULOSIN HYDROCHLORIDE
     Indication: Ill-defined disorder
     Dosage: UNK
     Route: 065
     Dates: start: 20210728
  15. ZOPICLONE [Concomitant]
     Active Substance: ZOPICLONE
     Indication: Ill-defined disorder
     Dosage: UNK, PRN (TAKE ONE AT NIGHT )
     Route: 065
     Dates: start: 20211224, end: 20211231

REACTIONS (1)
  - Palpitations [Recovering/Resolving]

NARRATIVE: CASE EVENT DATE: 20220112
